FAERS Safety Report 4540033-8 (Version None)
Quarter: 2004Q4

REPORT INFORMATION
  Report Type: 
  Country: None (occurrence: None)
  Receive Date: 20041223
  Receipt Date: 20041215
  Transmission Date: 20050328
  Serious: Yes (Hospitalization)
  Sender: FDA-Public Use
  Company Number: FABR-10809

PATIENT
  Age: 39 Year
  Sex: Male
  Weight: 79.5 kg

DRUGS (7)
  1. FABRAZYME [Suspect]
     Indication: FABRY'S DISEASE
     Dosage: 1 MG/KG Q2WKS IV
     Route: 042
     Dates: start: 20030707, end: 20040308
  2. FABRAZYME [Suspect]
     Indication: FABRY'S DISEASE
     Dosage: 105 MG Q2WKS IV
     Route: 042
     Dates: start: 20040308
  3. LIPITOR [Concomitant]
  4. TEGRETOL [Concomitant]
  5. ALTACE [Concomitant]
  6. FELOPIDINE (ACE INHIBITOR) [Concomitant]
  7. ASPIRIN [Concomitant]

REACTIONS (4)
  - BLOOD CREATININE INCREASED [None]
  - BLOOD UREA INCREASED [None]
  - HAEMODIALYSIS [None]
  - RENAL TRANSPLANT [None]
